FAERS Safety Report 10378686 (Version 4)
Quarter: 2015Q1

REPORT INFORMATION
  Report Type: Spontaneous
  Country: US (occurrence: US)
  Receive Date: 20140812
  Receipt Date: 20150302
  Transmission Date: 20150720
  Serious: Yes (Hospitalization, Other)
  Sender: FDA-Public Use
  Company Number: US-BAYER-2014-119380

PATIENT
  Age: 23 Year
  Sex: Female
  Weight: 54.42 kg

DRUGS (2)
  1. MIRENA [Suspect]
     Active Substance: LEVONORGESTREL
     Indication: CONTRACEPTION
     Dosage: 20 MCG/24HR, CONT
     Route: 015
     Dates: start: 20080115, end: 20090302
  2. TRI-SPRINTEC [Concomitant]
     Active Substance: ETHINYL ESTRADIOL\NORGESTIMATE
     Dosage: UNK
     Dates: start: 2004

REACTIONS (18)
  - Device physical property issue [None]
  - Headache [None]
  - Uterine perforation [None]
  - Off label use [None]
  - Device issue [None]
  - Feeling abnormal [None]
  - Nervousness [None]
  - Injury [None]
  - Pain [None]
  - Fear [None]
  - Poor quality sleep [None]
  - Suicidal ideation [None]
  - Headache [None]
  - Contusion [None]
  - Fatigue [None]
  - Device dislocation [None]
  - Discomfort [None]
  - Dizziness [None]

NARRATIVE: CASE EVENT DATE: 20090220
